FAERS Safety Report 6354177-1 (Version None)
Quarter: 2009Q3

REPORT INFORMATION
  Report Type: 
  Country: None (occurrence: None)
  Receive Date: 20090914
  Receipt Date: 20090907
  Transmission Date: 20100115
  Serious: Yes (Death, Other)
  Sender: FDA-Public Use
  Company Number: PL-ROCHE-655535

PATIENT
  Age: 34 Year
  Sex: Female

DRUGS (3)
  1. XELODA [Suspect]
     Indication: DRUG USE FOR UNKNOWN INDICATION
     Dosage: FOR 2 WEEK WITH I WEEK BREAK.
     Route: 065
  2. HERCEPTIN [Suspect]
     Route: 065
  3. PACLITAXEL [Concomitant]
     Dosage: RECEIVED TWO COURCES OF PALLIATIVE CHEMOTHERAPY.

REACTIONS (6)
  - DIARRHOEA [None]
  - DISEASE PROGRESSION [None]
  - FATIGUE [None]
  - NAUSEA [None]
  - NEUTROPENIA [None]
  - PALMAR-PLANTAR ERYTHRODYSAESTHESIA SYNDROME [None]
